FAERS Safety Report 22620593 (Version 1)
Quarter: 2023Q2

REPORT INFORMATION
  Report Type: Spontaneous
  Country: US (occurrence: US)
  Receive Date: 20230620
  Receipt Date: 20230620
  Transmission Date: 20230722
  Serious: No
  Sender: FDA-Public Use
  Company Number: US-KYOWAKIRIN-2023BKK009146

PATIENT

DRUGS (1)
  1. CRYSVITA [Suspect]
     Active Substance: BUROSUMAB-TWZA
     Indication: Product used for unknown indication
     Dosage: 150 MG, 1X/MONTH
     Route: 065

REACTIONS (3)
  - Blood phosphorus decreased [Unknown]
  - Drug ineffective [Unknown]
  - Overdose [Not Recovered/Not Resolved]
